FAERS Safety Report 8176247-8 (Version None)
Quarter: 2012Q1

REPORT INFORMATION
  Report Type: 
  Country: None (occurrence: None)
  Receive Date: 20120301
  Receipt Date: 20120223
  Transmission Date: 20120608
  Serious: Yes (Other)
  Sender: FDA-Public Use
  Company Number: CA-JNJFOC-20120212580

PATIENT
  Sex: Female

DRUGS (1)
  1. REMICADE [Suspect]
     Indication: ANKYLOSING SPONDYLITIS
     Route: 042

REACTIONS (4)
  - ROAD TRAFFIC ACCIDENT [None]
  - MUSCLE STRAIN [None]
  - THORACIC OUTLET SYNDROME [None]
  - INTERVERTEBRAL DISC PROTRUSION [None]
